FAERS Safety Report 11980700 (Version 1)
Quarter: 2016Q1

REPORT INFORMATION
  Report Type: Spontaneous
  Country: DK (occurrence: DK)
  Receive Date: 20160129
  Receipt Date: 20160129
  Transmission Date: 20160526
  Serious: Yes (Death, Hospitalization)
  Sender: FDA-Public Use
  Company Number: DK-WATSON-2016-01166

PATIENT
  Age: 63 Year
  Sex: Male

DRUGS (1)
  1. ANTABUSE [Suspect]
     Active Substance: DISULFIRAM
     Indication: ALCOHOL ABUSE
     Dosage: 800 MG, 2/WEEK
     Route: 048
     Dates: start: 20150116, end: 20150324

REACTIONS (14)
  - Suspiciousness [Unknown]
  - Respiratory therapy [Not Recovered/Not Resolved]
  - Hepatic function abnormal [Fatal]
  - Renal impairment [Fatal]
  - Altered state of consciousness [Fatal]
  - Infection [Fatal]
  - Multiple organ dysfunction syndrome [Fatal]
  - Hepatic enzyme increased [Fatal]
  - Decreased appetite [Not Recovered/Not Resolved]
  - Acute hepatic failure [Fatal]
  - Fatigue [Not Recovered/Not Resolved]
  - Anger [Unknown]
  - Drug-induced liver injury [Fatal]
  - Abdominal pain [Not Recovered/Not Resolved]

NARRATIVE: CASE EVENT DATE: 201503
